FAERS Safety Report 5886367-6 (Version None)
Quarter: 2008Q3

REPORT INFORMATION
  Report Type: 
  Country: None (occurrence: None)
  Receive Date: 20080917
  Receipt Date: 20080910
  Transmission Date: 20090109
  Serious: Yes (Other)
  Sender: FDA-Public Use
  Company Number: US-ASTRAZENECA-2008UW18759

PATIENT
  Age: 63 Year
  Sex: Female
  Weight: 84.8 kg

DRUGS (4)
  1. ARIMIDEX [Suspect]
     Indication: BREAST CANCER
     Route: 048
  2. SYNTHROID [Concomitant]
  3. LIPITOR [Concomitant]
  4. ATIVAN [Concomitant]

REACTIONS (16)
  - ABDOMINAL DISTENSION [None]
  - ARTHRITIS [None]
  - BONE PAIN [None]
  - CALCINOSIS [None]
  - CATARACT [None]
  - EYE MOVEMENT DISORDER [None]
  - GASTROOESOPHAGEAL REFLUX DISEASE [None]
  - ILL-DEFINED DISORDER [None]
  - OEDEMA PERIPHERAL [None]
  - PUPILLARY DISORDER [None]
  - TEMPERATURE INTOLERANCE [None]
  - THYROID DISORDER [None]
  - THYROID NEOPLASM [None]
  - VENOUS VALVE RUPTURED [None]
  - VISUAL ACUITY REDUCED [None]
  - WEIGHT INCREASED [None]
